FAERS Safety Report 7300806-5 (Version None)
Quarter: 2010Q4

REPORT INFORMATION
  Report Type: 
  Country: None (occurrence: None)
  Receive Date: 20101230
  Receipt Date: 20100517
  Transmission Date: 20110411
  Serious: Yes (Hospitalization)
  Sender: FDA-Public Use
  Company Number: TPH-00260

PATIENT
  Age: 42 Year
  Sex: Female
  Weight: 76.6 kg

DRUGS (4)
  1. TRIPHASIL-28 [Suspect]
     Indication: CONTRACEPTION
     Dosage: 1 TABLET, DAILY, ORAL
     Route: 048
     Dates: start: 19900101, end: 20080101
  2. TRIPHASIL-28 [Suspect]
     Indication: UTERINE LEIOMYOMA
     Dosage: 1 TABLET, DAILY, ORAL
     Route: 048
     Dates: start: 19900101, end: 20080101
  3. TRIVORA-28 [Suspect]
     Indication: CONTRACEPTION
     Dosage: 1 TABLET, DAILY, ORAL
     Route: 048
     Dates: start: 20080101
  4. TRIVORA-28 [Suspect]
     Indication: UTERINE LEIOMYOMA
     Dosage: 1 TABLET, DAILY, ORAL
     Route: 048
     Dates: start: 20080101

REACTIONS (2)
  - BLOOD PRESSURE INCREASED [None]
  - MYOCARDIAL INFARCTION [None]
